FAERS Safety Report 7126099-X (Version None)
Quarter: 2010Q4

REPORT INFORMATION
  Report Type: 
  Country: None (occurrence: None)
  Receive Date: 20101129
  Receipt Date: 20101119
  Transmission Date: 20110411
  Serious: Yes (Hospitalization)
  Sender: FDA-Public Use
  Company Number: DE-AMGEN-UK378113

PATIENT
  Weight: 80 kg

DRUGS (7)
  1. NEULASTA [Suspect]
     Indication: CHEMOTHERAPY
     Dosage: .6 ML, UNK
     Route: 058
     Dates: start: 20090707
  2. DOCETAXEL [Suspect]
     Dosage: 75 MG/M2, Q3WK
     Route: 041
     Dates: start: 20090928
  3. EPIRUBICIN [Suspect]
     Dosage: 75 MG/M2, Q3WK
     Route: 041
     Dates: start: 20090928
  4. CYCLOPHOSPHAMIDE [Suspect]
     Dosage: 500 MG/M2, Q3WK
     Route: 041
     Dates: start: 20090928
  5. RED BLOOD CELLS, CONCENTRATED [Concomitant]
     Dosage: UNK UNK, UNK
     Route: 042
     Dates: start: 20091006
  6. CIPROFLOXACIN HYDROCHLORIDE [Concomitant]
     Dosage: UNK UNK, UNK
     Route: 042
     Dates: start: 20091006
  7. UNSPECIFIED VITAMINS [Concomitant]
     Dosage: UNK UNK, UNK
     Route: 042
     Dates: start: 20091006

REACTIONS (3)
  - ANAEMIA [None]
  - LEUKOPENIA [None]
  - NEUTROPENIA [None]
